FAERS Safety Report 13425238 (Version 2)
Quarter: 2018Q3

REPORT INFORMATION
  Report Type: Report from Study
  Country: CO (occurrence: CO)
  Receive Date: 20170411
  Receipt Date: 20180718
  Transmission Date: 20181010
  Serious: Yes (Hospitalization)
  Sender: FDA-Public Use
  Company Number: PHHY2017CO023926

PATIENT
  Age: 48 Year
  Sex: Male
  Weight: 64 kg

DRUGS (2)
  1. COSENTYX [Suspect]
     Active Substance: SECUKINUMAB
     Indication: PSORIATIC ARTHROPATHY
  2. COSENTYX [Suspect]
     Active Substance: SECUKINUMAB
     Indication: PSORIASIS
     Dosage: 300 MG, QMO
     Route: 058
     Dates: start: 20160620, end: 20161212

REACTIONS (10)
  - Myalgia [Recovered/Resolved]
  - Rash [Unknown]
  - Back pain [Unknown]
  - Infection [Unknown]
  - Peritonitis [Recovered/Resolved]
  - Poor quality sleep [Unknown]
  - Skin mass [Unknown]
  - Spinal pain [Unknown]
  - Musculoskeletal discomfort [Unknown]
  - Arthralgia [Recovered/Resolved]

NARRATIVE: CASE EVENT DATE: 20161215
